FAERS Safety Report 10407081 (Version 4)
Quarter: 2015Q2

REPORT INFORMATION
  Report Type: Spontaneous
  Country: US (occurrence: US)
  Receive Date: 20140825
  Receipt Date: 20150617
  Transmission Date: 20150821
  Serious: Yes (Hospitalization, Other)
  Sender: FDA-Public Use
  Company Number: US-GLAXOSMITHKLINE-A1085127A

PATIENT
  Sex: Female

DRUGS (17)
  1. ALBUTEROL/IPRATROPIUM [Concomitant]
     Active Substance: ALBUTEROL\IPRATROPIUM
  2. TRAMADOL [Concomitant]
     Active Substance: TRAMADOL
  3. MULTIVITAMIN [Concomitant]
     Active Substance: VITAMINS
  4. FLUTICASONE [Concomitant]
     Active Substance: FLUTICASONE\FLUTICASONE PROPIONATE
  5. ADVAIR HFA [Suspect]
     Active Substance: FLUTICASONE PROPIONATE\SALMETEROL XINAFOATE
     Indication: ASTHMA
     Dosage: 1 PUFF(S), BID
     Route: 065
     Dates: start: 2004
  6. CRESTOR [Concomitant]
     Active Substance: ROSUVASTATIN CALCIUM
  7. METOPROLOL [Concomitant]
     Active Substance: METOPROLOL
  8. PREDNISONE. [Concomitant]
     Active Substance: PREDNISONE
  9. NORTRIPTYLINE [Concomitant]
     Active Substance: NORTRIPTYLINE
  10. VENTOLIN [Concomitant]
     Active Substance: ALBUTEROL SULFATE
  11. CALCIUM + VITAMIN D [Concomitant]
     Active Substance: CALCIUM\VITAMIN D
  12. OMEPRAZOLE. [Concomitant]
     Active Substance: OMEPRAZOLE
  13. PRESERVISION [Concomitant]
     Active Substance: MINERALS\VITAMINS
  14. COLACE [Concomitant]
     Active Substance: DOCUSATE SODIUM
  15. METHOTREXATE [Concomitant]
     Active Substance: METHOTREXATE
  16. ASPIRIN. [Concomitant]
     Active Substance: ASPIRIN
  17. FOLIC ACID. [Concomitant]
     Active Substance: FOLIC ACID

REACTIONS (3)
  - Pneumonia [Recovered/Resolved]
  - Ill-defined disorder [Recovered/Resolved]
  - Product quality issue [Unknown]
